FAERS Safety Report 22957426 (Version 3)
Quarter: 2024Q1

REPORT INFORMATION
  Report Type: Spontaneous
  Country: US (occurrence: US)
  Receive Date: 20230919
  Receipt Date: 20240219
  Transmission Date: 20240409
  Serious: No
  Sender: FDA-Public Use
  Company Number: US-BEH-2023163229

PATIENT
  Sex: Female

DRUGS (30)
  1. HIZENTRA [Suspect]
     Active Substance: HUMAN IMMUNOGLOBULIN G
     Indication: Immunodeficiency common variable
     Dosage: 12 GRAM, QW
     Route: 058
  2. HIZENTRA [Suspect]
     Active Substance: HUMAN IMMUNOGLOBULIN G
     Dosage: UNK
     Route: 058
  3. HIZENTRA [Suspect]
     Active Substance: HUMAN IMMUNOGLOBULIN G
     Dosage: UNK
     Route: 058
  4. HIZENTRA [Suspect]
     Active Substance: HUMAN IMMUNOGLOBULIN G
     Dosage: 12 GRAM, QW
     Route: 058
  5. LASIX [Concomitant]
     Active Substance: FUROSEMIDE
  6. ZOLOFT [Concomitant]
     Active Substance: SERTRALINE HYDROCHLORIDE
  7. ALBUTEROL SULFATE [Concomitant]
     Active Substance: ALBUTEROL SULFATE
  8. AMLODIPINE BESYLATE [Concomitant]
     Active Substance: AMLODIPINE BESYLATE
  9. AZELASTINE HYDROCHLORIDE [Concomitant]
     Active Substance: AZELASTINE HYDROCHLORIDE
  10. CALCIUM [Concomitant]
     Active Substance: CALCIUM
  11. CLOBETASOL PROPION [Concomitant]
  12. ELDERBERRY EXTRACT [Concomitant]
  13. FLUCONAZOLE [Concomitant]
     Active Substance: FLUCONAZOLE
  14. HYDROCHLOROTHIAZIDE [Concomitant]
     Active Substance: HYDROCHLOROTHIAZIDE
  15. KLOR-CON M20 [Concomitant]
     Active Substance: POTASSIUM CHLORIDE
  16. ZYRTEC [Concomitant]
     Active Substance: CETIRIZINE HYDROCHLORIDE
  17. DOXYCYCLINE [Concomitant]
     Active Substance: DOXYCYCLINE
  18. DICLOFENAC DIETHYLAMINE [Concomitant]
     Active Substance: DICLOFENAC DIETHYLAMINE
  19. LEVOTHYROXINE [Concomitant]
     Active Substance: LEVOTHYROXINE\LEVOTHYROXINE SODIUM
  20. LYRICA [Concomitant]
     Active Substance: PREGABALIN
  21. MECLIZINE HYDROCHLORIDE [Concomitant]
     Active Substance: MECLIZINE HYDROCHLORIDE
  22. MELATONIN [Concomitant]
     Active Substance: MELATONIN
  23. METOPROLOL [Concomitant]
     Active Substance: METOPROLOL
  24. MONTELUKAST [Concomitant]
     Active Substance: MONTELUKAST SODIUM
  25. NASACORT ALLERGO [Concomitant]
  26. PROLIA [Concomitant]
     Active Substance: DENOSUMAB
  27. REFRESH [POLYVINYL ALCOHOL;POVIDONE] [Concomitant]
  28. TRELEGY ELLIPTA [Concomitant]
     Active Substance: FLUTICASONE FUROATE\UMECLIDINIUM BROMIDE\VILANTEROL TRIFENATATE
  29. TYLENOL 8HR [Concomitant]
     Active Substance: ACETAMINOPHEN
  30. DICLOFENAC [Concomitant]
     Active Substance: DICLOFENAC

REACTIONS (10)
  - Swelling [Unknown]
  - Therapy change [Unknown]
  - Infusion site swelling [Recovered/Resolved]
  - Infusion site erythema [Recovered/Resolved]
  - Infusion site pruritus [Recovered/Resolved]
  - Musculoskeletal stiffness [Recovered/Resolved]
  - Depressed mood [Recovered/Resolved]
  - Infection [Recovered/Resolved]
  - Infusion site swelling [Recovered/Resolved]
  - Infusion site pruritus [Recovered/Resolved]
